FAERS Safety Report 15180407 (Version 2)
Quarter: 2018Q3

REPORT INFORMATION
  Report Type: Spontaneous
  Country: DE (occurrence: DE)
  Receive Date: 20180723
  Receipt Date: 20180917
  Transmission Date: 20181010
  Serious: Yes (Hospitalization)
  Sender: FDA-Public Use
  Company Number: DE-DRREDDYS-GER/GER/18/0102134

PATIENT
  Age: 52 Year
  Sex: Female

DRUGS (8)
  1. AKINETON [Concomitant]
     Active Substance: BIPERIDEN HYDROCHLORIDE
     Indication: PRODUCT USED FOR UNKNOWN INDICATION
     Dosage: DAILY DOSE 4MG?FOR WEEKS ? B.A.W.
     Route: 048
  2. RAMIPRIL. [Suspect]
     Active Substance: RAMIPRIL
     Indication: PRODUCT USED FOR UNKNOWN INDICATION
     Dosage: DAILY DOSE 5MG FOR WEEKS ? B.A.W.
     Route: 048
     Dates: start: 201107
  3. MIRTAZAPINE. [Concomitant]
     Active Substance: MIRTAZAPINE
     Indication: PRODUCT USED FOR UNKNOWN INDICATION
     Dosage: DAILY DOSE 45MG FOR WEEKS ? B.A.W.
     Route: 048
  4. FLUPENTIXOL [Concomitant]
     Active Substance: FLUPENTIXOL
     Indication: PRODUCT USED FOR UNKNOWN INDICATION
     Dosage: DAILY DOSE 4MG?FOR WEEKS ? B.A.W.
     Route: 048
  5. QUILONUM RETARD [Suspect]
     Active Substance: LITHIUM CARBONATE
     Dosage: DAILY DOSE 450MG
     Route: 048
     Dates: start: 20180329
  6. EUTHYROX [Concomitant]
     Active Substance: LEVOTHYROXINE SODIUM
     Indication: PRODUCT USED FOR UNKNOWN INDICATION
     Dosage: DAILY DOSE 100 MCG?FOR WEEKS ? B.A.W.
     Route: 048
  7. QUILONUM RETARD [Suspect]
     Active Substance: LITHIUM CARBONATE
     Indication: PRODUCT USED FOR UNKNOWN INDICATION
     Dosage: DAILY DOSE 900 MG?SINCE WEEKS ? 24.03.2018
     Route: 048
     Dates: start: 2012, end: 20180324
  8. QUILONUM RETARD [Suspect]
     Active Substance: LITHIUM CARBONATE
     Dosage: DAILY DOSE 675 MG?30.03.20818 ? B.A.W.
     Route: 048
     Dates: start: 20180330

REACTIONS (5)
  - Restlessness [Recovered/Resolved]
  - Sleep disorder [Recovered/Resolved]
  - Toxicity to various agents [Recovered/Resolved]
  - Tremor [Recovered/Resolved]
  - Hyperhidrosis [Recovered/Resolved]

NARRATIVE: CASE EVENT DATE: 20180322
